FAERS Safety Report 4880670-4 (Version None)
Quarter: 2006Q1

REPORT INFORMATION
  Report Type: 
  Country: None (occurrence: None)
  Receive Date: 20060113
  Receipt Date: 20050317
  Transmission Date: 20060701
  Serious: Yes (Hospitalization, Disabling)
  Sender: FDA-Public Use
  Company Number: US-MERCK-0503USA03463

PATIENT
  Age: 57 Year
  Sex: Male
  Weight: 80 kg

DRUGS (8)
  1. ATENOLOL [Concomitant]
     Route: 065
  2. VIOXX [Suspect]
     Indication: ARTHRITIS
     Route: 048
     Dates: start: 19990101, end: 20030101
  3. DARVOCET-N 50 [Concomitant]
     Route: 065
  4. MONOPRIL [Concomitant]
     Route: 065
  5. GLYBURIDE [Concomitant]
     Route: 065
  6. LOTENSIN [Concomitant]
     Route: 065
  7. PRAVACHOL [Concomitant]
     Route: 065
  8. AVALIDE [Concomitant]
     Route: 065

REACTIONS (2)
  - CAROTID ARTERY STENOSIS [None]
  - CEREBROVASCULAR ACCIDENT [None]
